FAERS Safety Report 15729418 (Version 2)
Quarter: 2018Q4

REPORT INFORMATION
  Report Type: Spontaneous
  Country: HK (occurrence: HK)
  Receive Date: 20181217
  Receipt Date: 20181221
  Transmission Date: 20190205
  Serious: Yes (Disabling)
  Sender: FDA-Public Use
  Company Number: HK-GLAXOSMITHKLINE-HK2018GSK225173

PATIENT
  Age: 40 Year
  Sex: Female

DRUGS (1)
  1. AVAMYS [Suspect]
     Active Substance: FLUTICASONE FUROATE
     Indication: RHINITIS ALLERGIC
     Dosage: 1 DF, QD, (SPRAY)

REACTIONS (6)
  - Olfactory nerve disorder [Unknown]
  - Sneezing [Unknown]
  - Social problem [Unknown]
  - Anosmia [Unknown]
  - Circumstance or information capable of leading to medication error [Unknown]
  - Weight decreased [Unknown]

NARRATIVE: CASE EVENT DATE: 201810
